FAERS Safety Report 8492988-7 (Version None)
Quarter: 2012Q3

REPORT INFORMATION
  Report Type: 
  Country: None (occurrence: None)
  Receive Date: 20120706
  Receipt Date: 20120629
  Transmission Date: 20120928
  Serious: Yes (Other)
  Sender: FDA-Public Use
  Company Number: GB-JNJFOC-20120701477

PATIENT
  Sex: Female

DRUGS (1)
  1. HALDOL [Suspect]
     Indication: PRODUCT USED FOR UNKNOWN INDICATION
     Route: 030

REACTIONS (6)
  - GASTROINTESTINAL INFECTION [None]
  - CONSTIPATION [None]
  - VAGINAL INFECTION [None]
  - DIABETES MELLITUS [None]
  - URINARY INCONTINENCE [None]
  - COUGH [None]
